FAERS Safety Report 12626145 (Version 1)
Quarter: 2016Q3

REPORT INFORMATION
  Report Type: Spontaneous
  Country: US (occurrence: US)
  Receive Date: 20160805
  Receipt Date: 20160805
  Transmission Date: 20161109
  Serious: Yes (Other)
  Sender: FDA-Public Use
  Company Number: US-BAYER-2016-145621

PATIENT
  Sex: Female

DRUGS (1)
  1. MIRENA [Suspect]
     Active Substance: LEVONORGESTREL
     Indication: MENSTRUAL CYCLE MANAGEMENT
     Dosage: 20 UNK, UNK
     Route: 015
     Dates: start: 201607

REACTIONS (4)
  - Product use issue [None]
  - Device use issue [None]
  - Pregnancy with contraceptive device [Not Recovered/Not Resolved]
  - Menstruation delayed [Not Recovered/Not Resolved]
